FAERS Safety Report 4852348-4 (Version None)
Quarter: 2005Q4

REPORT INFORMATION
  Report Type: 
  Country: None (occurrence: None)
  Receive Date: 20051213
  Receipt Date: 20051024
  Transmission Date: 20060501
  Serious: Yes (Other)
  Sender: FDA-Public Use
  Company Number: PHEH2005US11810

PATIENT
  Age: 38 Year
  Sex: Female

DRUGS (6)
  1. TRILEPTAL [Suspect]
     Indication: EPILEPSY
     Dosage: 600 MG, BID
     Route: 048
     Dates: start: 20041001
  2. KLONOPIN [Concomitant]
  3. LAMICTAL [Concomitant]
  4. ATIVAN [Concomitant]
  5. NORCO [Concomitant]
     Dosage: UNK, PRN
  6. PREMARIN [Concomitant]

REACTIONS (3)
  - DISEASE PROGRESSION [None]
  - HALLUCINATION, AUDITORY [None]
  - SOMNOLENCE [None]
